FAERS Safety Report 20745132 (Version 1)
Quarter: 2022Q2

REPORT INFORMATION
  Report Type: Report from Study
  Country: EG (occurrence: EG)
  Receive Date: 20220425
  Receipt Date: 20220425
  Transmission Date: 20220721
  Serious: Yes (Other)
  Sender: FDA-Public Use
  Company Number: EG-NOVARTISPH-NVSC2022EG092764

PATIENT
  Age: 40 Year
  Sex: Female

DRUGS (2)
  1. KISQALI [Suspect]
     Active Substance: RIBOCICLIB
     Indication: Breast cancer metastatic
     Dosage: 200 MG (3 TABLET FOR 3 WEEKS AND 1 WEEK OFF)
     Route: 048
     Dates: start: 202106
  2. FASLODEX [Concomitant]
     Active Substance: FULVESTRANT
     Indication: Product used for unknown indication
     Dosage: UNK
     Route: 065

REACTIONS (3)
  - Breast cancer [Not Recovered/Not Resolved]
  - Fatigue [Unknown]
  - Enzyme activity increased [Not Recovered/Not Resolved]

NARRATIVE: CASE EVENT DATE: 20211201
